FAERS Safety Report 9344929 (Version 1)
Quarter: 2013Q2

REPORT INFORMATION
  Report Type: Spontaneous
  Country: BR (occurrence: BR)
  Receive Date: 20130612
  Receipt Date: 20130612
  Transmission Date: 20140414
  Serious: Yes (Hospitalization, Other)
  Sender: FDA-Public Use
  Company Number: PHHY2013BR059700

PATIENT
  Sex: Male
  Weight: 80 kg

DRUGS (11)
  1. EXELON PATCH [Suspect]
     Indication: DEMENTIA ALZHEIMER^S TYPE
     Dosage: 4.6 MG, DAILY
     Route: 062
     Dates: end: 2012
  2. EXELON PATCH [Suspect]
     Dosage: 9.5 MG, DAILY
     Route: 062
     Dates: start: 2012, end: 201305
  3. EXELON PATCH [Suspect]
     Dosage: 13.3 MG, DAILY
     Route: 062
     Dates: start: 201305
  4. DIOVAN AMLO [Concomitant]
     Indication: HYPERTENSION
     Dosage: 1 DF, DAILY
     Route: 048
  5. TOLREST [Concomitant]
     Indication: DEPRESSION
     Dosage: 1 DF, DAILY
     Route: 048
  6. ZIDER [Concomitant]
     Indication: MEMORY IMPAIRMENT
     Dosage: 1 DF, DAILY
     Route: 048
  7. AAS [Concomitant]
     Indication: CARDIOVASCULAR DISORDER
     Dosage: 1 DF, DAILY
     Route: 048
  8. VIT. E [Concomitant]
     Dosage: 1 DF, DAILY
     Route: 048
  9. COMPLEX B                          /00653501/ [Concomitant]
     Dosage: 1 DF, DAILY
     Route: 048
  10. QUEROPAX [Concomitant]
     Indication: SLEEP DISORDER
     Dosage: 2 DF, DAILY
     Route: 048
  11. QUEROPAX [Concomitant]
     Indication: DEMENTIA ALZHEIMER^S TYPE

REACTIONS (10)
  - Aneurysm [Not Recovered/Not Resolved]
  - Aortic aneurysm [Recovered/Resolved]
  - Embolism [Recovered/Resolved]
  - Blood triglycerides increased [Not Recovered/Not Resolved]
  - Wrong technique in drug usage process [Unknown]
  - Nausea [Not Recovered/Not Resolved]
  - Vomiting [Not Recovered/Not Resolved]
  - Headache [Not Recovered/Not Resolved]
  - Abdominal pain upper [Not Recovered/Not Resolved]
  - Depression [Not Recovered/Not Resolved]
